FAERS Safety Report 9812113 (Version 1)
Quarter: 2014Q1

REPORT INFORMATION
  Report Type: Report from Study
  Country: ES (occurrence: ES)
  Receive Date: 20140111
  Receipt Date: 20140111
  Transmission Date: 20141002
  Serious: Yes (Hospitalization)
  Sender: FDA-Public Use
  Company Number: ES-AMGEN-ESPCT2014001098

PATIENT
  Age: 64 Year
  Sex: Male

DRUGS (3)
  1. PANITUMUMAB [Suspect]
     Indication: GASTRIC CANCER
     Dosage: 259 MG, Q2WK
     Route: 042
     Dates: start: 20130916, end: 20131231
  2. DOCETAXEL [Concomitant]
     Indication: GASTRIC CANCER
     Dosage: 64 MG, Q2WK
     Route: 042
     Dates: start: 20130916, end: 20131231
  3. CISPLATINO [Concomitant]
     Indication: GASTRIC CANCER
     Dosage: 64 MG, Q2WK
     Route: 042
     Dates: start: 20130916, end: 20131231

REACTIONS (1)
  - Asthenia [Unknown]
